FAERS Safety Report 7156202-7 (Version None)
Quarter: 2010Q4

REPORT INFORMATION
  Report Type: 
  Country: None (occurrence: None)
  Receive Date: 20101123
  Receipt Date: 20101007
  Transmission Date: 20110411
  Serious: Yes (Hospitalization)
  Sender: FDA-Public Use
  Company Number: 014629

PATIENT
  Sex: Male
  Weight: 78 kg

DRUGS (2)
  1. CIMZIA [Suspect]
     Indication: CROHN'S DISEASE
     Dosage: 400 MG 1X/MONTH SUBCUTANEOUS
     Route: 058
     Dates: start: 20100301, end: 20100401
  2. FLAGYL [Concomitant]

REACTIONS (2)
  - POLYARTHRITIS [None]
  - RASH [None]
